FAERS Safety Report 5041814-7 (Version None)
Quarter: 2006Q2

REPORT INFORMATION
  Report Type: 
  Country: None (occurrence: None)
  Receive Date: 20060630
  Receipt Date: 20060621
  Transmission Date: 20061013
  Serious: Yes (Hospitalization)
  Sender: FDA-Public Use
  Company Number: 226559

PATIENT
  Age: 8 Year
  Sex: Male

DRUGS (2)
  1. NUTROPIN AQ [Suspect]
     Indication: GROWTH HORMONE DEFICIENCY
     Dosage: 1.3 MG, 7/WEEK,
     Dates: start: 19990616
  2. MIRALAX [Concomitant]

REACTIONS (3)
  - DEHYDRATION [None]
  - GASTROENTERITIS [None]
  - WEIGHT DECREASED [None]
